FAERS Safety Report 14188611 (Version 4)
Quarter: 2018Q1

REPORT INFORMATION
  Report Type: Report from Study
  Country: US (occurrence: US)
  Receive Date: 20171114
  Receipt Date: 20180321
  Transmission Date: 20180508
  Serious: Yes (Hospitalization)
  Sender: FDA-Public Use
  Company Number: US-ACTELION-A-US2017-162167

PATIENT
  Age: 77 Year
  Sex: Female

DRUGS (11)
  1. TYLENOL [Concomitant]
     Active Substance: ACETAMINOPHEN
  2. OPSUMIT [Suspect]
     Active Substance: MACITENTAN
     Indication: PULMONARY ARTERIAL HYPERTENSION
     Dosage: 10 MG, QD
     Route: 048
     Dates: start: 20170729
  3. MAGNESIUM CITRATE. [Concomitant]
     Active Substance: MAGNESIUM CITRATE
  4. PEPCID [Concomitant]
     Active Substance: FAMOTIDINE
  5. MULTAQ [Concomitant]
     Active Substance: DRONEDARONE
  6. LIPITOR [Concomitant]
     Active Substance: ATORVASTATIN CALCIUM
  7. DIAZEPAM. [Concomitant]
     Active Substance: DIAZEPAM
  8. METOPROLOL. [Concomitant]
     Active Substance: METOPROLOL
  9. TRAMADOL. [Concomitant]
     Active Substance: TRAMADOL
  10. FUROSEMIDE. [Concomitant]
     Active Substance: FUROSEMIDE
  11. VITAMIN D [Concomitant]
     Active Substance: CHOLECALCIFEROL

REACTIONS (9)
  - Nasopharyngitis [Unknown]
  - Rhinorrhoea [Unknown]
  - Cyanosis [Unknown]
  - Vomiting [Recovering/Resolving]
  - Nasal congestion [Unknown]
  - Dyspnoea [Unknown]
  - Nausea [Unknown]
  - Fluid retention [Recovering/Resolving]
  - Pneumonia [Recovered/Resolved]

NARRATIVE: CASE EVENT DATE: 20171030
